FAERS Safety Report 5772538-6 (Version None)
Quarter: 2008Q2

REPORT INFORMATION
  Report Type: 
  Country: None (occurrence: None)
  Receive Date: 20080613
  Receipt Date: 20080606
  Transmission Date: 20081010
  Serious: Yes (Hospitalization)
  Sender: FDA-Public Use
  Company Number: JP-ABBOTT-08P-087-0454067-00

PATIENT
  Age: 16 Year
  Sex: Female

DRUGS (5)
  1. CLARITHROMYCIN [Suspect]
     Indication: NERVOUS SYSTEM DISORDER
     Dosage: NOT REPORTED
  2. PRANLUKAST [Suspect]
     Indication: NERVOUS SYSTEM DISORDER
     Dosage: NOT REPORTED
  3. PHENOBARBITAL TAB [Concomitant]
     Indication: NERVOUS SYSTEM DISORDER
     Dosage: NOT REPORTED
  4. CLONAZEPAM [Concomitant]
     Indication: NERVOUS SYSTEM DISORDER
     Dosage: NOT REPORTED
  5. VALPROATE SODIUM [Concomitant]
     Indication: NERVOUS SYSTEM DISORDER
     Dosage: NOT REPORTED

REACTIONS (6)
  - CONTINUOUS HAEMODIAFILTRATION [None]
  - INFECTION [None]
  - MULTI-ORGAN FAILURE [None]
  - NEUROLEPTIC MALIGNANT SYNDROME [None]
  - RHABDOMYOLYSIS [None]
  - VENTRICULAR EXTRASYSTOLES [None]
